FAERS Safety Report 17913325 (Version 1)
Quarter: 2020Q2

REPORT INFORMATION
  Report Type: Spontaneous
  Country: US (occurrence: US)
  Receive Date: 20200618
  Receipt Date: 20200618
  Transmission Date: 20200714
  Serious: No
  Sender: FDA-Public Use
  Company Number: US-THERAPEUTICSMD-2020TMD01130

PATIENT
  Age: 77 Year
  Sex: Female
  Weight: 53.52 kg

DRUGS (4)
  1. IMVEXXY [Suspect]
     Active Substance: ESTRADIOL
     Indication: VULVOVAGINAL DRYNESS
     Dosage: 10 ?G, 2X/WEEK AT BEDTIME
     Dates: start: 201909, end: 20200224
  2. BRIMONIDINE [Concomitant]
     Active Substance: BRIMONIDINE TARTRATE
  3. VITAMINS [Concomitant]
     Active Substance: VITAMINS
  4. LUMIGAN [Concomitant]
     Active Substance: BIMATOPROST

REACTIONS (3)
  - Pruritus [Recovering/Resolving]
  - Off label use [Recovered/Resolved]
  - Hypersensitivity [Recovering/Resolving]

NARRATIVE: CASE EVENT DATE: 201909
